FAERS Safety Report 23741473 (Version 1)
Quarter: 2024Q2

REPORT INFORMATION
  Report Type: Spontaneous
  Country: SG (occurrence: None)
  Receive Date: 20240415
  Receipt Date: 20240415
  Transmission Date: 20240716
  Serious: Yes (Hospitalization)
  Sender: FDA-Public Use
  Company Number: SG-ROCHE-3542407

PATIENT
  Age: 66 Year
  Sex: Male

DRUGS (3)
  1. TECENTRIQ [Suspect]
     Active Substance: ATEZOLIZUMAB
     Indication: Colorectal cancer metastatic
     Dosage: CYCLICAL
     Route: 041
     Dates: start: 20240118, end: 20240118
  2. ZANZALINTINIB [Suspect]
     Active Substance: ZANZALINTINIB
     Indication: Colorectal cancer metastatic
     Route: 065
     Dates: start: 20240118, end: 20240126
  3. OMEPRAZOLE [Concomitant]
     Active Substance: OMEPRAZOLE
     Dates: start: 20230112

REACTIONS (2)
  - Gastroenteritis [Recovered/Resolved]
  - Gastrointestinal obstruction [Recovered/Resolved]

NARRATIVE: CASE EVENT DATE: 20240127
